FAERS Safety Report 7989868-X (Version None)
Quarter: 2011Q4

REPORT INFORMATION
  Report Type: 
  Country: None (occurrence: None)
  Receive Date: 20111219
  Receipt Date: 20110111
  Transmission Date: 20120403
  Serious: No
  Sender: FDA-Public Use
  Company Number: US-ASTRAZENECA-2011SE01991

PATIENT
  Age: 78 Year
  Sex: Female

DRUGS (8)
  1. CRESTOR [Suspect]
     Indication: BLOOD CHOLESTEROL INCREASED
     Route: 048
     Dates: start: 20101201, end: 20101201
  2. FEXOFENADINE HCL [Concomitant]
  3. NEBULIZER [Concomitant]
  4. ACIPHEX [Concomitant]
  5. AMLODIPINE [Concomitant]
  6. OXYBUTYNIN [Concomitant]
     Indication: BLADDER DISORDER
  7. TRIAMITERENE [Concomitant]
  8. SINGULAIR [Concomitant]

REACTIONS (2)
  - GASTROOESOPHAGEAL REFLUX DISEASE [None]
  - BURNING SENSATION [None]
